FAERS Safety Report 9137742 (Version 3)
Quarter: 2013Q2

REPORT INFORMATION
  Report Type: Report from Study
  Country: JP (occurrence: JP)
  Receive Date: 20130304
  Receipt Date: 20130514
  Transmission Date: 20140414
  Serious: Yes (Hospitalization)
  Sender: FDA-Public Use
  Company Number: JP-AMGEN-JPNCT2013014895

PATIENT
  Age: 86 Year
  Sex: Male
  Weight: 49 kg

DRUGS (25)
  1. ROMIPLATE [Suspect]
     Indication: IDIOPATHIC THROMBOCYTOPENIC PURPURA
     Dosage: 1 MUG, QWK
     Route: 058
     Dates: start: 20120518, end: 20120601
  2. ROMIPLATE [Suspect]
     Dosage: 2 MUG, QD
     Route: 058
     Dates: start: 20120608, end: 20120608
  3. ROMIPLATE [Suspect]
     Dosage: 3 MUG, QD
     Route: 058
     Dates: start: 20120615, end: 20120615
  4. ROMIPLATE [Suspect]
     Dosage: 4 MUG, QWK
     Route: 058
     Dates: start: 20120622, end: 20120720
  5. ROMIPLATE [Suspect]
     Dosage: 5 MUG, QWK
     Route: 058
     Dates: start: 20120727
  6. PREDONINE [Suspect]
     Indication: IDIOPATHIC THROMBOCYTOPENIC PURPURA
     Dosage: 15 MG, UNK
     Route: 048
     Dates: start: 20120504
  7. PREDONINE [Suspect]
     Dosage: 10 MG, UNK
     Route: 048
     Dates: start: 20120509, end: 20120605
  8. PREDONINE [Suspect]
     Dosage: 5 MG, UNK
     Route: 048
     Dates: start: 20120606, end: 20120619
  9. PREDONINE [Suspect]
     Dosage: 3 MG, UNK
     Route: 048
     Dates: start: 20120620, end: 20120626
  10. PREDONINE [Suspect]
     Dosage: 2 MG, UNK
     Route: 048
     Dates: start: 20120627, end: 20120703
  11. PREDONINE [Suspect]
     Dosage: 20 MG, UNK
     Route: 048
     Dates: start: 20120727, end: 20120823
  12. PREDONINE [Suspect]
     Dosage: 15 MG, UNK
     Route: 048
     Dates: start: 20120824
  13. PREDONINE [Suspect]
     Dosage: 15 MG, UNK
     Route: 048
     Dates: start: 20120504, end: 20120508
  14. HICEE [Concomitant]
     Indication: IDIOPATHIC THROMBOCYTOPENIC PURPURA
     Dosage: 8000 MG, UNK
     Dates: start: 20120504, end: 20120704
  15. ITRIZOLE [Concomitant]
     Indication: PROPHYLAXIS
     Dosage: UNK
     Route: 048
  16. BAKTAR [Concomitant]
     Indication: PROPHYLAXIS
     Dosage: UNK
     Route: 048
  17. SIGMART [Concomitant]
     Indication: ANGINA PECTORIS
     Dosage: UNK
     Route: 048
  18. PARIET [Concomitant]
     Indication: PROPHYLAXIS
     Dosage: UNK
     Route: 048
  19. BLOPRESS [Concomitant]
     Indication: HYPERTENSION
     Dosage: UNK
     Route: 048
  20. NESINA [Concomitant]
     Indication: DIABETES MELLITUS
     Dosage: UNK
     Route: 048
  21. BASEN [Concomitant]
     Indication: DIABETES MELLITUS
     Dosage: UNK
     Route: 048
  22. LOXONIN [Concomitant]
     Indication: SPINAL OSTEOARTHRITIS
     Dosage: UNK
     Route: 048
  23. LAC-B [Concomitant]
     Indication: DIARRHOEA
     Dosage: UNK
     Route: 048
  24. LOPEMIN [Concomitant]
     Indication: DIARRHOEA
     Dosage: UNK
     Route: 048
  25. BASEN OD [Concomitant]
     Indication: DIABETES MELLITUS
     Dosage: UNK
     Route: 048

REACTIONS (4)
  - Anaemia [Not Recovered/Not Resolved]
  - White blood cell count increased [Recovering/Resolving]
  - Neutrophil count increased [Recovering/Resolving]
  - Enterocolitis [Recovered/Resolved]
